FAERS Safety Report 4735786-X (Version None)
Quarter: 2005Q3

REPORT INFORMATION
  Report Type: 
  Country: None (occurrence: None)
  Receive Date: 20050805
  Receipt Date: 20050726
  Transmission Date: 20060218
  Serious: Yes (Other)
  Sender: FDA-Public Use
  Company Number: US-JNJFOC-20050800101

PATIENT
  Sex: Male

DRUGS (2)
  1. REGRANEX [Suspect]
     Indication: WOUND
     Dosage: DOSE REGIMEN UNSPECIFIED
     Route: 061
  2. ASPIRIN [Interacting]

REACTIONS (3)
  - DRUG INEFFECTIVE [None]
  - DRUG INTERACTION [None]
  - OSTEOMYELITIS [None]
